FAERS Safety Report 23601759 (Version 1)
Quarter: 2024Q1

REPORT INFORMATION
  Report Type: Spontaneous
  Country: FR (occurrence: FR)
  Receive Date: 20240306
  Receipt Date: 20240306
  Transmission Date: 20240410
  Serious: Yes (Hospitalization)
  Sender: FDA-Public Use
  Company Number: None

PATIENT
  Age: 51 Year
  Sex: Female

DRUGS (5)
  1. SPIRONOLACTONE [Suspect]
     Active Substance: SPIRONOLACTONE
     Indication: Hepatorenal syndrome
     Route: 048
     Dates: start: 20240107, end: 20240113
  2. FUROSEMIDE [Suspect]
     Active Substance: FUROSEMIDE
     Indication: Hepatorenal syndrome
     Route: 042
     Dates: start: 20240106, end: 20240114
  3. TERLIPRESSIN [Suspect]
     Active Substance: TERLIPRESSIN
     Indication: Hepatorenal syndrome
     Dosage: TERLIPRESSIN EVER PHARMA
     Route: 042
     Dates: start: 20240106, end: 20240112
  4. PIPERACILLIN AND TAZOBACTAM [Suspect]
     Active Substance: PIPERACILLIN SODIUM\TAZOBACTAM SODIUM
     Indication: Depression
     Dosage: PIPERACILLIN TAZOBACTAM KABI 4 G/500 MG, POWDER FOR SOLUTION FOR INJECTION OR INFUSION
     Route: 042
     Dates: start: 20240109, end: 20240111
  5. DULOXETINE [Suspect]
     Active Substance: DULOXETINE
     Indication: Depression
     Dosage: DULOXETINE MYLAN
     Route: 048
     Dates: start: 20240109, end: 20240114

REACTIONS (3)
  - Acute respiratory distress syndrome [Recovered/Resolved]
  - Eosinophilia [Recovered/Resolved]
  - Lung disorder [Not Recovered/Not Resolved]

NARRATIVE: CASE EVENT DATE: 20240110
